FAERS Safety Report 6862575-2 (Version None)
Quarter: 2010Q3

REPORT INFORMATION
  Report Type: 
  Country: None (occurrence: None)
  Receive Date: 20100721
  Receipt Date: 20100708
  Transmission Date: 20110219
  Serious: Yes (Other)
  Sender: FDA-Public Use
  Company Number: ES-ELI_LILLY_AND_COMPANY-ES201007003994

PATIENT
  Sex: Female

DRUGS (4)
  1. FORTEO [Suspect]
     Indication: OSTEOPOROSIS
     Dosage: 20 UG, DAILY (1/D)
     Route: 058
  2. CALCIO [Concomitant]
     Dosage: 1 D/F, DAILY (1/D)
     Route: 048
  3. VENORUTON [Concomitant]
     Indication: VARICOSE VEIN
     Dosage: 1 D/F, DAILY (1/D)
     Route: 048
  4. VENORUTON [Concomitant]
     Dosage: 1 D/F, 2/D
     Route: 048

REACTIONS (3)
  - ARTHRALGIA [None]
  - GAIT DISTURBANCE [None]
  - SYNOVIAL RUPTURE [None]
